FAERS Safety Report 4461238-0 (Version None)
Quarter: 2004Q3

REPORT INFORMATION
  Report Type: 
  Country: None (occurrence: None)
  Receive Date: 20040923
  Receipt Date: 20040915
  Transmission Date: 20050211
  Serious: Yes (Other)
  Sender: FDA-Public Use
  Company Number: 2004233498US

PATIENT
  Age: 60 Year
  Sex: Female

DRUGS (1)
  1. ESTRING [Suspect]
     Dates: end: 20040101

REACTIONS (7)
  - CHEMICAL INJURY [None]
  - DRUG INEFFECTIVE [None]
  - INFLAMMATION [None]
  - SUICIDAL IDEATION [None]
  - TREATMENT NONCOMPLIANCE [None]
  - VAGINAL MYCOSIS [None]
  - VAGINITIS BACTERIAL [None]
